FAERS Safety Report 5383985-9 (Version None)
Quarter: 2007Q3

REPORT INFORMATION
  Report Type: 
  Country: None (occurrence: None)
  Receive Date: 20070711
  Receipt Date: 20070705
  Transmission Date: 20080115
  Serious: Yes (Other)
  Sender: FDA-Public Use
  Company Number: DE-GENENTECH-243444

PATIENT
  Sex: Female
  Weight: 68 kg

DRUGS (1)
  1. MABTHERA [Suspect]
     Indication: EXTRANODAL MARGINAL ZONE B-CELL LYMPHOMA (MALT TYPE)
     Dosage: 671 MG, UNK
     Route: 042
     Dates: start: 20070423

REACTIONS (3)
  - JOINT SWELLING [None]
  - MYOCARDIAL INFARCTION [None]
  - VASCULITIS [None]
